FAERS Safety Report 23810811 (Version 4)
Quarter: 2024Q2

REPORT INFORMATION
  Report Type: Report from Study
  Country: CA (occurrence: CA)
  Receive Date: 20240502
  Receipt Date: 20240605
  Transmission Date: 20240716
  Serious: Yes (Death, Hospitalization, Other)
  Sender: FDA-Public Use
  Company Number: CA-BEH-2024169111

PATIENT
  Age: 81 Year
  Sex: Male
  Weight: 83 kg

DRUGS (28)
  1. HIZENTRA [Suspect]
     Active Substance: HUMAN IMMUNOGLOBULIN G
     Indication: Secondary immunodeficiency
     Dosage: 20 GRAM, QOW
     Route: 065
     Dates: start: 20231106, end: 20240130
  2. HIZENTRA [Suspect]
     Active Substance: HUMAN IMMUNOGLOBULIN G
     Dosage: 22 GRAM, QOW
     Route: 065
     Dates: start: 20240130
  3. HIZENTRA [Suspect]
     Active Substance: HUMAN IMMUNOGLOBULIN G
     Dosage: UNK
     Route: 065
  4. HIZENTRA [Suspect]
     Active Substance: HUMAN IMMUNOGLOBULIN G
     Dosage: UNK
     Route: 065
  5. HIZENTRA [Suspect]
     Active Substance: HUMAN IMMUNOGLOBULIN G
     Dosage: 22 GRAM
     Route: 065
     Dates: start: 20240311
  6. HIZENTRA [Suspect]
     Active Substance: HUMAN IMMUNOGLOBULIN G
     Dosage: 22 GRAM, QOW
     Route: 065
     Dates: start: 20231106
  7. HIZENTRA [Suspect]
     Active Substance: HUMAN IMMUNOGLOBULIN G
     Dosage: UNK
     Route: 065
     Dates: start: 20231106
  8. HIZENTRA [Suspect]
     Active Substance: HUMAN IMMUNOGLOBULIN G
     Dosage: UNK
     Route: 065
     Dates: start: 20231106
  9. HIZENTRA [Suspect]
     Active Substance: HUMAN IMMUNOGLOBULIN G
     Dosage: 22 GRAM
     Route: 065
     Dates: start: 20240325
  10. HIZENTRA [Suspect]
     Active Substance: HUMAN IMMUNOGLOBULIN G
     Dosage: 22 G
     Route: 065
     Dates: start: 20240408
  11. HIZENTRA [Suspect]
     Active Substance: HUMAN IMMUNOGLOBULIN G
     Dosage: 22 G
     Route: 065
     Dates: start: 20240422
  12. VALACYCLOVIR [Concomitant]
     Active Substance: VALACYCLOVIR HYDROCHLORIDE
  13. APIXABAN [Concomitant]
     Active Substance: APIXABAN
  14. KCITRATE [Concomitant]
  15. PANTOPRAZOLE [Concomitant]
     Active Substance: PANTOPRAZOLE
  16. GLICLAZIDE [Concomitant]
     Active Substance: GLICLAZIDE
  17. MAGNESIUM [Concomitant]
     Active Substance: MAGNESIUM
  18. CALCIUM [Concomitant]
     Active Substance: CALCIUM
  19. PREDNISONE [Concomitant]
     Active Substance: PREDNISONE
  20. NYSTATIN [Concomitant]
     Active Substance: NYSTATIN
  21. ACETAMINOPHEN [Concomitant]
     Active Substance: ACETAMINOPHEN
  22. MONTELUKAST [Concomitant]
     Active Substance: MONTELUKAST SODIUM
  23. CETIRIZINE HYDROCHLORIDE [Concomitant]
     Active Substance: CETIRIZINE HYDROCHLORIDE
  24. DEXAMETHASONE [Concomitant]
     Active Substance: DEXAMETHASONE
  25. DARATUMUMAB [Concomitant]
     Active Substance: DARATUMUMAB
  26. LENALIDOMIDE [Concomitant]
     Active Substance: LENALIDOMIDE
  27. DESONIDE [Concomitant]
     Active Substance: DESONIDE
  28. CHOLECALCIFEROL [Concomitant]
     Active Substance: CHOLECALCIFEROL

REACTIONS (20)
  - Death [Fatal]
  - Influenza [Unknown]
  - Dyspnoea [Unknown]
  - Post-tussive vomiting [Unknown]
  - Arthralgia [Unknown]
  - Mobility decreased [Unknown]
  - Bacteraemia [Unknown]
  - Fatigue [Recovered/Resolved]
  - Eye disorder [Unknown]
  - Product use issue [Unknown]
  - Malignant melanoma [Unknown]
  - Aphonia [Unknown]
  - Discomfort [Unknown]
  - Pleural effusion [Unknown]
  - Myalgia [Unknown]
  - Arthralgia [Unknown]
  - Pain [Unknown]
  - Blindness [Unknown]
  - Pulmonary oedema [Unknown]
  - Aphonia [Unknown]

NARRATIVE: CASE EVENT DATE: 20240101
